FAERS Safety Report 6496235-7 (Version None)
Quarter: 2009Q4

REPORT INFORMATION
  Report Type: 
  Country: None (occurrence: None)
  Receive Date: 20091214
  Receipt Date: 20091029
  Transmission Date: 20100525
  Serious: No
  Sender: FDA-Public Use
  Company Number: US-BRISTOL-MYERS SQUIBB COMPANY-14836670

PATIENT
  Age: 45 Year
  Sex: Male

DRUGS (2)
  1. ABILIFY [Suspect]
     Indication: MAJOR DEPRESSION
     Route: 048
  2. PROZAC [Concomitant]
     Indication: MAJOR DEPRESSION

REACTIONS (2)
  - OEDEMA PERIPHERAL [None]
  - URINARY RETENTION [None]
